FAERS Safety Report 12758913 (Version 3)
Quarter: 2016Q4

REPORT INFORMATION
  Report Type: Spontaneous
  Country: AU (occurrence: AU)
  Receive Date: 20160919
  Receipt Date: 20161117
  Transmission Date: 20170207
  Serious: Yes (Hospitalization, Other)
  Sender: FDA-Public Use
  Company Number: AU-AMGEN-AUSSP2016124159

PATIENT
  Age: 81 Year
  Sex: Male

DRUGS (5)
  1. CALCIUM + VIT D [Concomitant]
     Active Substance: CALCIUM\VITAMIN D
  2. ENZALUTAMIDE [Concomitant]
     Active Substance: ENZALUTAMIDE
  3. XGEVA [Suspect]
     Active Substance: DENOSUMAB
     Indication: METASTASES TO BONE
     Dosage: UNK
     Route: 065
  4. ABIRATERONE ACETATE [Concomitant]
     Active Substance: ABIRATERONE ACETATE
     Dosage: UNK
     Dates: start: 201501, end: 201509
  5. DOCETAXEL. [Concomitant]
     Active Substance: DOCETAXEL
     Dosage: UNK
     Dates: end: 201603

REACTIONS (12)
  - Anxiety [Unknown]
  - Disease progression [Unknown]
  - Wheelchair user [Unknown]
  - Fall [Unknown]
  - Pain [Unknown]
  - Metastases to lymph nodes [Unknown]
  - Drug intolerance [Unknown]
  - Fracture [Unknown]
  - Pneumonitis [Unknown]
  - Prostatic specific antigen increased [Unknown]
  - Metastases to spine [Unknown]
  - Peripheral swelling [Unknown]

NARRATIVE: CASE EVENT DATE: 2012
